FAERS Safety Report 9550215 (Version 2)
Quarter: 2013Q4

REPORT INFORMATION
  Report Type: Report from Study
  Country: BE (occurrence: BE)
  Receive Date: 20130924
  Receipt Date: 20131009
  Transmission Date: 20140711
  Serious: Yes (Death)
  Sender: FDA-Public Use
  Company Number: PHHY2013BE105026

PATIENT
  Sex: Female

DRUGS (1)
  1. SANDOSTATINE LAR [Suspect]
     Indication: NEUROENDOCRINE TUMOUR
     Dosage: 20 MG, ONCE A MONTH
     Route: 030

REACTIONS (2)
  - Neuroendocrine tumour [Fatal]
  - Metastases to peritoneum [Fatal]
